FAERS Safety Report 9512076 (Version 2)
Quarter: 2014Q1

REPORT INFORMATION
  Report Type: Spontaneous
  Country: US (occurrence: US)
  Receive Date: 20130910
  Receipt Date: 20140103
  Transmission Date: 20141002
  Serious: Yes (Other)
  Sender: FDA-Public Use
  Company Number: US-PFIZER INC-2013257483

PATIENT
  Age: 84 Year
  Sex: Female
  Weight: 74.83 kg

DRUGS (5)
  1. LIPITOR [Suspect]
     Indication: BLOOD CHOLESTEROL INCREASED
     Dosage: UNK
  2. NORVASC [Suspect]
     Indication: HYPERTENSION
     Dosage: UNK
  3. DETROL LA [Suspect]
     Dosage: UNK
  4. EFFEXOR XR [Suspect]
     Dosage: UNK
  5. NEURONTIN [Suspect]
     Dosage: UNK

REACTIONS (3)
  - Deafness [Unknown]
  - Body height decreased [Unknown]
  - Memory impairment [Unknown]
